FAERS Safety Report 18665108 (Version 1)
Quarter: 2020Q4

REPORT INFORMATION
  Report Type: Spontaneous
  Country: US (occurrence: US)
  Receive Date: 20201225
  Receipt Date: 20201225
  Transmission Date: 20210114
  Serious: No
  Sender: FDA-Public Use
  Company Number: US-LUPIN PHARMACEUTICALS INC.-2020-01252

PATIENT
  Age: 4 Year
  Sex: Male
  Weight: 16.78 kg

DRUGS (3)
  1. CEFDINIR. [Suspect]
     Active Substance: CEFDINIR
     Indication: PRODUCT USED FOR UNKNOWN INDICATION
     Dosage: UNK
     Route: 065
  2. CEFDINIR FOR ORAL SUSPENSION USP 125 MG/5 ML [Suspect]
     Active Substance: CEFDINIR
     Indication: STREPTOCOCCAL INFECTION
     Dosage: 4.5 MILLILITER, QD
     Route: 065
     Dates: start: 20200223
  3. CEFDINIR FOR ORAL SUSPENSION USP 125 MG/5 ML [Suspect]
     Active Substance: CEFDINIR
     Indication: EAR INFECTION

REACTIONS (1)
  - Eczema [Unknown]
